FAERS Safety Report 4386178-7 (Version None)
Quarter: 2004Q3

REPORT INFORMATION
  Report Type: 
  Country: None (occurrence: None)
  Receive Date: 20040622
  Receipt Date: 20040609
  Transmission Date: 20050211
  Serious: Yes (Death, Life-Threatening, Hospitalization, Other)
  Sender: FDA-Public Use
  Company Number: 2004038284

PATIENT
  Age: 80 Year
  Sex: Male

DRUGS (7)
  1. SERTRALINE HCL [Suspect]
     Indication: ILL-DEFINED DISORDER
     Dosage: 50 MG (50 MG, 1 IN 1 D), ORAL
     Route: 048
     Dates: start: 20040210
  2. ENOXAPARIN SODIUM [Suspect]
     Indication: DEEP VEIN THROMBOSIS
     Dosage: (40 MG), SUBCUTANEOUS
     Route: 058
     Dates: start: 20040207, end: 20040309
  3. CEFEPIME (CEFEPIME) [Suspect]
     Indication: BRONCHITIS CHRONIC
     Dates: start: 20040210, end: 20040218
  4. OMEPRAZOLE [Suspect]
     Indication: ILL-DEFINED DISORDER
     Dates: start: 20040207, end: 20040317
  5. ACETAMINOPHEN [Suspect]
     Indication: ILL-DEFINED DISORDER
     Dates: start: 20040207, end: 20040223
  6. AMLODIPINE BESYLATE [Suspect]
     Indication: ILL-DEFINED DISORDER
     Dates: start: 20040207, end: 20040223
  7. CEFTAZIDIME SODIUM [Concomitant]

REACTIONS (3)
  - MARROW HYPERPLASIA [None]
  - MYOCARDIAL INFARCTION [None]
  - THROMBOCYTOPENIA [None]
